FAERS Safety Report 5362182-7 (Version None)
Quarter: 2007Q2

REPORT INFORMATION
  Report Type: 
  Country: None (occurrence: None)
  Receive Date: 20070619
  Receipt Date: 20070613
  Transmission Date: 20071010
  Serious: Yes (Hospitalization)
  Sender: FDA-Public Use
  Company Number: HQWYE598613JUN07

PATIENT
  Age: 74 Year
  Sex: Female

DRUGS (1)
  1. CORDARONE [Suspect]
     Indication: VENTRICULAR TACHYCARDIA
     Route: 048
     Dates: start: 20040301, end: 20070201

REACTIONS (1)
  - LUNG DISORDER [None]
